FAERS Safety Report 20683159 (Version 2)
Quarter: 2022Q2

REPORT INFORMATION
  Report Type: Report from Study
  Country: AR (occurrence: AR)
  Receive Date: 20220407
  Receipt Date: 20220412
  Transmission Date: 20220721
  Serious: Yes (Life-Threatening, Hospitalization)
  Sender: FDA-Public Use
  Company Number: AR-NOVARTISPH-NVSC2022AR079101

PATIENT
  Sex: Female

DRUGS (5)
  1. EXFORGE HCT [Suspect]
     Active Substance: AMLODIPINE BESYLATE\HYDROCHLOROTHIAZIDE\VALSARTAN
     Indication: Blood pressure increased
     Dosage: 2  (UNITS NOT REPORTED), UNK, QD START DATE: SINCE 15 OR 20 YEARS AGO, STOP DATE: JAN 2019)
     Route: 065
  2. EXFORGE HCT [Suspect]
     Active Substance: AMLODIPINE BESYLATE\HYDROCHLOROTHIAZIDE\VALSARTAN
     Dosage: UNK, (STOP DATE: 3 MONTHS AGO)
     Route: 065
  3. EXFORGE [Suspect]
     Active Substance: AMLODIPINE BESYLATE\VALSARTAN
     Indication: Blood pressure increased
     Dosage: UNK, (5/160MG) QD (START DATE: SINCE 3 MONTHS AGO APPROXIMATELY)
     Route: 065
  4. FEMARA [Suspect]
     Active Substance: LETROZOLE
     Indication: Breast cancer
     Dosage: 1 (UNIT NOT REPORTED) UNK, QD (START DATE: SINCE 3 YEARS)
     Route: 065
  5. ADIKAN [Concomitant]
     Indication: Gastritis erosive
     Dosage: 1 DOSAGE FORM, QD, (PER DAY EVERY MORNING)
     Route: 065

REACTIONS (7)
  - Dehydration [Unknown]
  - Blood pressure increased [Unknown]
  - Drug hypersensitivity [Unknown]
  - Nervousness [Unknown]
  - Abdominal pain upper [Unknown]
  - Bone pain [Unknown]
  - Inappropriate schedule of product administration [Unknown]
